FAERS Safety Report 14559324 (Version 1)
Quarter: 2018Q1

REPORT INFORMATION
  Report Type: Spontaneous
  Country: US (occurrence: US)
  Receive Date: 20180220
  Receipt Date: 20180220
  Transmission Date: 20180509
  Serious: Yes (Hospitalization)
  Sender: FDA-Public Use
  Company Number: None

PATIENT
  Sex: Male

DRUGS (25)
  1. MYCOPHENOLATE, 250 MG [Suspect]
     Active Substance: MYCOPHENOLATE MOFETIL
     Indication: LIVER TRANSPLANT
     Route: 048
     Dates: start: 20170720
  2. SODIUM BICAR [Concomitant]
  3. TAMSULOSIN [Concomitant]
     Active Substance: TAMSULOSIN
  4. BD PEN NEEDL [Concomitant]
  5. CALCIUM GLUC [Concomitant]
  6. XIFAXAN [Concomitant]
     Active Substance: RIFAXIMIN
  7. CHOLESTYRAM [Concomitant]
     Active Substance: CHOLESTYRAMINE
  8. GABAPENTIN. [Concomitant]
     Active Substance: GABAPENTIN
  9. TRAMADOL HCL [Concomitant]
     Active Substance: TRAMADOL HYDROCHLORIDE
  10. MIRTAZAPINE. [Concomitant]
     Active Substance: MIRTAZAPINE
  11. METOPROL TAR [Concomitant]
  12. FLUCONAZOLE. [Concomitant]
     Active Substance: FLUCONAZOLE
  13. FREESTYLE MIS LANCETS [Concomitant]
  14. DOXYCYCL HYC [Concomitant]
  15. LATANOPROST. [Concomitant]
     Active Substance: LATANOPROST
  16. HUMALOG [Concomitant]
     Active Substance: INSULIN LISPRO
  17. MAG OXIDE [Concomitant]
     Active Substance: MAGNESIUM OXIDE
  18. CYCLOSPORINE, 100 MG [Suspect]
     Active Substance: CYCLOSPORINE
     Indication: LIVER TRANSPLANT
     Route: 048
     Dates: start: 20170720
  19. AMOX/K CLAV [Concomitant]
     Active Substance: AMOXICILLIN\CLAVULANATE POTASSIUM
  20. METOPROLOL. [Concomitant]
     Active Substance: METOPROLOL
  21. HUMULIN N [Concomitant]
     Active Substance: INSULIN HUMAN
  22. VITAMIN D3 [Concomitant]
     Active Substance: CHOLECALCIFEROL
  23. CELLCEPT [Concomitant]
     Active Substance: MYCOPHENOLATE MOFETIL\MYCOPHENOLATE MOFETIL HYDROCHLORIDE
  24. FREESTYLE TES LITE [Concomitant]
  25. ONDANSETRON [Concomitant]
     Active Substance: ONDANSETRON

REACTIONS (1)
  - Pyrexia [None]
